FAERS Safety Report 8412233-8 (Version None)
Quarter: 2012Q2

REPORT INFORMATION
  Report Type: 
  Country: None (occurrence: None)
  Receive Date: 20120605
  Receipt Date: 20120530
  Transmission Date: 20120825
  Serious: Yes (Hospitalization, Other)
  Sender: FDA-Public Use
  Company Number: CA-ABBOTT-12P-028-0919337-00

PATIENT
  Sex: Female
  Weight: 50 kg

DRUGS (1)
  1. HUMIRA [Suspect]
     Indication: CROHN'S DISEASE
     Route: 058
     Dates: start: 20110106, end: 20120306

REACTIONS (4)
  - DRUG INEFFECTIVE [None]
  - GASTROINTESTINAL DISORDER [None]
  - ILEAL STENOSIS [None]
  - CROHN'S DISEASE [None]
